FAERS Safety Report 15712308 (Version 5)
Quarter: 2019Q2

REPORT INFORMATION
  Report Type: Spontaneous
  Country: PT (occurrence: PT)
  Receive Date: 20181212
  Receipt Date: 20190614
  Transmission Date: 20190711
  Serious: Yes (Other)
  Sender: FDA-Public Use
  Company Number: PT-AUROBINDO-AUR-APL-2018-059603

PATIENT

DRUGS (10)
  1. SIMVASTATIN 20MG [Suspect]
     Active Substance: SIMVASTATIN
     Dosage: UNK
     Route: 065
  2. BISOPROLOL 5 MG [Suspect]
     Active Substance: BISOPROLOL
     Dosage: UNK, ONCE DAILY
     Route: 065
  3. METFORMIN;VILDAGLIPTIN [Suspect]
     Active Substance: METFORMIN\VILDAGLIPTIN
     Indication: PRODUCT USED FOR UNKNOWN INDICATION
     Dosage: 1 DOSAGE FORM, TWO TIMES A DAY
     Route: 065
  4. SIMVASTATIN 20MG [Suspect]
     Active Substance: SIMVASTATIN
     Indication: PRODUCT USED FOR UNKNOWN INDICATION
     Dosage: 20 MILLIGRAM, ONCE A DAY
     Route: 065
  5. AMLODIPINE+VALSARTAN  5MG/80MG [Suspect]
     Active Substance: AMLODIPINE\VALSARTAN
     Indication: PRODUCT USED FOR UNKNOWN INDICATION
     Dosage: 1 DOSAGE FORM, ONCE A DAY
     Route: 065
  6. BISOPROLOL 5 MG [Suspect]
     Active Substance: BISOPROLOL
     Indication: PRODUCT USED FOR UNKNOWN INDICATION
     Dosage: 5 MILLIGRAM, ONCE A DAY
     Route: 065
  7. SERENOA REPENS [Suspect]
     Active Substance: SERENOA REPENS WHOLE
     Indication: PRODUCT USED FOR UNKNOWN INDICATION
     Dosage: UNK, ONCE A DAY
     Route: 065
  8. AMLODIPINE+VALSARTAN  5MG/80MG [Suspect]
     Active Substance: AMLODIPINE\VALSARTAN
     Dosage: UNK, ONCE A DAY
     Route: 065
  9. SERENOA REPENS [Suspect]
     Active Substance: SERENOA REPENS WHOLE
     Dosage: 160 MILLIGRAM, ONCE A DAY
     Route: 065
  10. METFORMIN;VILDAGLIPTIN [Suspect]
     Active Substance: METFORMIN\VILDAGLIPTIN
     Dosage: UNK, TWICE DAILY
     Route: 065

REACTIONS (3)
  - Underdose [Unknown]
  - Glycosylated haemoglobin increased [Unknown]
  - Pancreatic carcinoma metastatic [Not Recovered/Not Resolved]

NARRATIVE: CASE EVENT DATE: 201607
